FAERS Safety Report 17908590 (Version 1)
Quarter: 2020Q2

REPORT INFORMATION
  Report Type: Spontaneous
  Country: JP (occurrence: JP)
  Receive Date: 20200617
  Receipt Date: 20200617
  Transmission Date: 20200714
  Serious: Yes (Hospitalization)
  Sender: FDA-Public Use
  Company Number: JP-AYTU BIOSCIENCES, INC.-2020AYT000143

PATIENT

DRUGS (3)
  1. CILOSTAZOL. [Concomitant]
     Active Substance: CILOSTAZOL
     Indication: CEREBRAL INFARCTION
     Dosage: UNK
     Dates: start: 201306
  2. RABEPRAZOLE SODIUM UNKNOWN [Suspect]
     Active Substance: RABEPRAZOLE SODIUM
     Dosage: 10 MG, QD
     Route: 048
     Dates: start: 201511
  3. RABEPRAZOLE SODIUM UNKNOWN [Suspect]
     Active Substance: RABEPRAZOLE SODIUM
     Indication: PRODUCT USED FOR UNKNOWN INDICATION
     Dosage: 20 MG, QD
     Route: 048
     Dates: start: 2012

REACTIONS (2)
  - Blood gastrin increased [Unknown]
  - Gastric polyps [Recovered/Resolved]

NARRATIVE: CASE EVENT DATE: 201304
